FAERS Safety Report 10080559 (Version 1)
Quarter: 2014Q2

REPORT INFORMATION
  Report Type: Spontaneous
  Country: BR (occurrence: BR)
  Receive Date: 20140416
  Receipt Date: 20140416
  Transmission Date: 20141212
  Serious: Yes (Other)
  Sender: FDA-Public Use
  Company Number: BR-ASTRAZENECA-2014SE25223

PATIENT
  Age: 57 Year
  Sex: Male

DRUGS (4)
  1. BRILINTA [Suspect]
     Indication: ACUTE CORONARY SYNDROME
     Route: 048
     Dates: start: 2014
  2. METOPROLOL SUCCINATE [Suspect]
     Indication: ACUTE CORONARY SYNDROME
     Dosage: DAILY.
     Route: 048
     Dates: start: 2014
  3. ROSUVASTATIN [Suspect]
     Indication: ACUTE CORONARY SYNDROME
     Dosage: DAILY.
     Route: 048
     Dates: start: 2014
  4. ASA [Concomitant]
     Indication: ACUTE CORONARY SYNDROME
     Route: 048
     Dates: start: 2014

REACTIONS (2)
  - Coronary artery thrombosis [Recovered/Resolved]
  - Intentional product misuse [Recovered/Resolved]
